FAERS Safety Report 8000590 (Version 2)
Quarter: 2013Q1

REPORT INFORMATION
  Report Type: Spontaneous
  Country: US (occurrence: US)
  Receive Date: 20110621
  Receipt Date: 20130114
  Transmission Date: 20140127
  Serious: Yes (Hospitalization, Other)
  Sender: FDA-Public Use
  Company Number: US-ELI_LILLY_AND_COMPANY-US201010001558

PATIENT
  Sex: Female
  Weight: 83.9 kg

DRUGS (20)
  1. BYETTA [Suspect]
     Indication: DIABETES MELLITUS
     Dosage: 5 UG, BID
     Dates: start: 20070821, end: 20070827
  2. BYETTA [Suspect]
     Dosage: UNK
     Dates: start: 20080102, end: 20080110
  3. BYETTA [Suspect]
     Dosage: UNK
     Dates: start: 20080125, end: 20080127
  4. BYETTA [Suspect]
     Dosage: UNK
     Dates: start: 20080413, end: 20080415
  5. BYETTA [Suspect]
     Dosage: UNK
     Dates: start: 20080525, end: 20080527
  6. BYETTA [Suspect]
     Dosage: UNK
     Dates: start: 20080621, end: 20080623
  7. BYETTA [Suspect]
     Dosage: UNK
     Dates: start: 20080817, end: 20080913
  8. ACTONEL [Concomitant]
     Indication: OSTEOPOROSIS
     Dosage: UNK
     Dates: start: 20080823, end: 20080913
  9. BONIVA [Concomitant]
     Indication: OSTEOPOROSIS
  10. ADVAIR [Concomitant]
     Indication: UPPER RESPIRATORY TRACT INFECTION
     Dosage: UNK
     Dates: start: 20080823, end: 20080913
  11. AZITHROMYCIN [Concomitant]
     Indication: INFECTION
     Dosage: UNK
     Dates: start: 20080823, end: 20080829
  12. DIOVAN [Concomitant]
     Indication: HYPERTENSION
     Dosage: UNK
     Dates: start: 20080913
  13. FOLIC ACID [Concomitant]
     Indication: RED BLOOD CELL COUNT DECREASED
     Dosage: UNK
     Dates: start: 20041214, end: 20090625
  14. HYDROCODONE W/HOMATROPINE [Concomitant]
     Indication: COUGH
     Dosage: UNK
     Dates: start: 20080823, end: 20090311
  15. LEVOTHYROXINE [Concomitant]
     Indication: HYPOTHYROIDISM
     Dosage: UNK
     Dates: start: 20060731, end: 20090625
  16. LIPITOR [Concomitant]
     Indication: HYPERCHOLESTEROLAEMIA
  17. LISINOPRIL [Concomitant]
     Indication: HYPERTENSION
     Dosage: UNK
     Dates: start: 20080111, end: 20081009
  18. METFORMIN [Concomitant]
     Indication: DIABETES MELLITUS
     Dosage: UNK
     Dates: start: 20040215, end: 20081110
  19. SIMVASTATIN [Concomitant]
     Indication: HYPERCHOLESTEROLAEMIA
     Dosage: UNK
     Dates: start: 20080411, end: 20081009
  20. ZITHROMAX [Concomitant]
     Indication: UPPER RESPIRATORY TRACT INFECTION
     Dosage: UNK
     Dates: start: 20080823, end: 20080913

REACTIONS (11)
  - Pancreatitis necrotising [Recovering/Resolving]
  - Pancreatitis acute [Unknown]
  - Haematuria [Recovered/Resolved]
  - Pancreas infection [Recovered/Resolved]
  - Venous thrombosis limb [Recovered/Resolved]
  - Splenic vein occlusion [Unknown]
  - Renal cyst [Unknown]
  - Pleural effusion [Unknown]
  - Mass [Unknown]
  - Dyspepsia [Unknown]
  - Gastritis [Unknown]
